FAERS Safety Report 16016287 (Version 1)
Quarter: 2019Q1

REPORT INFORMATION
  Report Type: Spontaneous
  Country: US (occurrence: US)
  Receive Date: 20190228
  Receipt Date: 20190228
  Transmission Date: 20190418
  Serious: Yes (Other)
  Sender: FDA-Public Use
  Company Number: US-BION-007820

PATIENT
  Age: 52 Year
  Sex: Male

DRUGS (5)
  1. FLUTICASONE/SALMETEROL [Concomitant]
     Dosage: 250-50 MICROGRAM G 1 PUFF INHALED?TWICE DAILY
  2. IBUPROFEN. [Suspect]
     Active Substance: IBUPROFEN
     Indication: BACK PAIN
     Dosage: 200 MG BY MOUTH
     Route: 048
  3. ALLOPURINOL. [Concomitant]
     Active Substance: ALLOPURINOL
     Dosage: 100 MG ORAL ONCE DAILY,
     Route: 048
  4. OMEPRAZOLE. [Concomitant]
     Active Substance: OMEPRAZOLE
     Dosage: 40 MG ORAL ONCE DAILY
     Route: 048
  5. SALBUTAMOL [Concomitant]
     Active Substance: ALBUTEROL
     Dosage: 90 MICROGRAM G/ACTUATED HYDROFLUOROALKANE AEROSOL

REACTIONS (1)
  - Aspirin-exacerbated respiratory disease [Unknown]
